FAERS Safety Report 14720769 (Version 1)
Quarter: 2018Q2

REPORT INFORMATION
  Report Type: Spontaneous
  Country: US (occurrence: US)
  Receive Date: 20180405
  Receipt Date: 20180405
  Transmission Date: 20180711
  Serious: No
  Sender: FDA-Public Use
  Company Number: US-HORIZON-PEN-0223-2018

PATIENT
  Age: 73 Year
  Sex: Female

DRUGS (1)
  1. PENNSAID [Suspect]
     Active Substance: DICLOFENAC SODIUM
     Indication: ARTHRITIS
     Dosage: 1 PACKET ON BOTH HANDS IN THE MORNING
     Route: 061
     Dates: start: 20180328

REACTIONS (4)
  - Application site rash [Unknown]
  - Application site swelling [Not Recovered/Not Resolved]
  - Off label use [Unknown]
  - Vasodilatation [Not Recovered/Not Resolved]

NARRATIVE: CASE EVENT DATE: 20180328
